FAERS Safety Report 5261701-9 (Version None)
Quarter: 2007Q1

REPORT INFORMATION
  Report Type: 
  Country: None (occurrence: None)
  Receive Date: 20061208
  Receipt Date: 20060515
  Transmission Date: 20070707
  Serious: Yes (Other)
  Sender: FDA-Public Use
  Company Number: USA-2006-0024238

PATIENT
  Age: 28 Year
  Sex: Male

DRUGS (3)
  1. OXYCODONE HCL [Suspect]
     Indication: PHARYNGOLARYNGEAL PAIN
     Dosage: 40 MG, SEE TEXT, ORAL
     Route: 048
     Dates: start: 20060327, end: 20060507
  2. DIAZEPAM [Concomitant]
  3. CYCLOBENZAPRINE HCL [Concomitant]

REACTIONS (4)
  - DECREASED APPETITE [None]
  - DRUG DEPENDENCE [None]
  - DRUG WITHDRAWAL SYNDROME [None]
  - NAUSEA [None]
